FAERS Safety Report 9508646 (Version 1)
Quarter: 2013Q3

REPORT INFORMATION
  Report Type: Spontaneous
  Country: AR (occurrence: AR)
  Receive Date: 20130909
  Receipt Date: 20130909
  Transmission Date: 20140515
  Serious: Yes (Hospitalization, Other)
  Sender: FDA-Public Use
  Company Number: AR-PFIZER INC-2013254462

PATIENT
  Age: 54 Year
  Sex: Female

DRUGS (3)
  1. SERTRALINE HCL [Suspect]
     Dosage: 250 MG, AT NIGHT
  2. ACETAMINOPHEN W/OXYCODONE [Suspect]
     Dosage: 7.5/500 MG, TWO TABLETS EVERY FOUR HOURS AS NEEDED
  3. METHADONE [Suspect]
     Dosage: 30 MG, 1X/DAY

REACTIONS (8)
  - Extradural abscess [Recovered/Resolved]
  - Sedation [Recovered/Resolved]
  - Overdose [Recovered/Resolved]
  - Drug withdrawal syndrome [Unknown]
  - Pain [Recovering/Resolving]
  - Mental status changes [Recovered/Resolved]
  - Urinary retention [Recovered/Resolved]
  - Pyrexia [Recovered/Resolved]
